FAERS Safety Report 12631165 (Version 2)
Quarter: 2016Q3

REPORT INFORMATION
  Report Type: Spontaneous
  Country: US (occurrence: US)
  Receive Date: 20160808
  Receipt Date: 20160808
  Transmission Date: 20161109
  Serious: No
  Sender: FDA-Public Use
  Company Number: US-BEH-2015052537

PATIENT
  Sex: Male
  Weight: 74 kg

DRUGS (21)
  1. VITAMIN C [Concomitant]
     Active Substance: ASCORBIC ACID
  2. ACETAMINOPHEN. [Concomitant]
     Active Substance: ACETAMINOPHEN
  3. FINASTERIDE. [Concomitant]
     Active Substance: FINASTERIDE
  4. VENTOLIN HFA [Concomitant]
     Active Substance: ALBUTEROL SULFATE
  5. LIDOCAINE 4% [Concomitant]
     Active Substance: LIDOCAINE
  6. DULERA [Concomitant]
     Active Substance: FORMOTEROL FUMARATE DIHYDRATE\MOMETASONE FUROATE
  7. ALPRAZOLAM. [Concomitant]
     Active Substance: ALPRAZOLAM
  8. DIPHENHYDRAMINE. [Concomitant]
     Active Substance: DIPHENHYDRAMINE
  9. HIZENTRA [Suspect]
     Active Substance: HUMAN IMMUNOGLOBULIN G
     Indication: IMMUNODEFICIENCY
     Route: 058
  10. OMEPRAZOLE. [Concomitant]
     Active Substance: OMEPRAZOLE
  11. ASMANEX [Concomitant]
     Active Substance: MOMETASONE FUROATE
  12. CLONAZEPAM. [Concomitant]
     Active Substance: CLONAZEPAM
  13. FISH OIL [Concomitant]
     Active Substance: FISH OIL
  14. ZINC [Concomitant]
     Active Substance: ZINC\ZINC CHLORIDE
  15. FEXOFENADINE [Concomitant]
     Active Substance: FEXOFENADINE\FEXOFENADINE HYDROCHLORIDE
  16. VITAMIN D [Concomitant]
     Active Substance: CHOLECALCIFEROL
  17. QNASL [Concomitant]
     Active Substance: BECLOMETHASONE DIPROPIONATE
  18. MONTELUKAST SODIUM. [Concomitant]
     Active Substance: MONTELUKAST SODIUM
  19. RANITIDINE HCL [Concomitant]
     Active Substance: RANITIDINE HYDROCHLORIDE
  20. CALCIUM MAGNESIUM [Concomitant]
     Active Substance: CALCIUM\MAGNESIUM
  21. EPIPEN [Concomitant]
     Active Substance: EPINEPHRINE
     Indication: ANAPHYLACTIC REACTION

REACTIONS (3)
  - Nausea [Unknown]
  - Cough [Unknown]
  - Diarrhoea [Unknown]
